FAERS Safety Report 7048707-4 (Version None)
Quarter: 2010Q4

REPORT INFORMATION
  Report Type: 
  Country: None (occurrence: None)
  Receive Date: 20101018
  Receipt Date: 20101008
  Transmission Date: 20110411
  Serious: Yes (Other)
  Sender: FDA-Public Use
  Company Number: US-BIOGENIDEC-2010BI029549

PATIENT
  Age: 63 Year
  Sex: Female

DRUGS (10)
  1. AVONEX [Suspect]
     Indication: MULTIPLE SCLEROSIS
     Route: 030
     Dates: start: 20011101
  2. COUMADIN [Concomitant]
  3. COUMADIN [Concomitant]
     Route: 048
  4. BACLOFEN [Concomitant]
  5. BACLOFEN [Concomitant]
  6. CALTRATE [Concomitant]
  7. DOXAZOSIN MESYLATE [Concomitant]
  8. PROVIGIL [Concomitant]
  9. SANCTURA [Concomitant]
  10. VYTORIN [Concomitant]

REACTIONS (2)
  - INJECTION SITE PAIN [None]
  - THROMBOSIS [None]
